FAERS Safety Report 21624401 (Version 1)
Quarter: 2022Q4

REPORT INFORMATION
  Report Type: Spontaneous
  Country: US (occurrence: US)
  Receive Date: 20221121
  Receipt Date: 20221121
  Transmission Date: 20230112
  Serious: Yes (Life-Threatening, Hospitalization, Other)
  Sender: FDA-Public Use
  Company Number: US-BRACCO-2022US02633

PATIENT
  Age: 65 Year
  Sex: Male

DRUGS (12)
  1. LUMASON [Suspect]
     Active Substance: SULFUR HEXAFLUORIDE
     Indication: Echocardiogram
     Dosage: UNK UNK, SINGLE
     Dates: start: 20220706, end: 20220706
  2. LUMASON [Suspect]
     Active Substance: SULFUR HEXAFLUORIDE
     Indication: Echocardiogram
     Dosage: UNK UNK, SINGLE
     Dates: start: 20220706, end: 20220706
  3. LUMASON [Suspect]
     Active Substance: SULFUR HEXAFLUORIDE
     Indication: Echocardiogram
     Dosage: UNK UNK, SINGLE
     Dates: start: 20220706, end: 20220706
  4. METFORMIN [Concomitant]
     Active Substance: METFORMIN HYDROCHLORIDE
  5. TRENTAL [Concomitant]
     Active Substance: PENTOXIFYLLINE
  6. AMOXICILLIN [Concomitant]
     Active Substance: AMOXICILLIN
  7. LOPRESSOR [Concomitant]
     Active Substance: METOPROLOL TARTRATE
  8. ECOTRIN [Concomitant]
     Active Substance: ASPIRIN
  9. TYLENOL [Concomitant]
     Active Substance: ACETAMINOPHEN
  10. PRILOSEC [Concomitant]
     Active Substance: OMEPRAZOLE MAGNESIUM
  11. LIPITOR [Concomitant]
     Active Substance: ATORVASTATIN CALCIUM
  12. WELLBUTRIN XL [Concomitant]
     Active Substance: BUPROPION HYDROCHLORIDE

REACTIONS (1)
  - Anaphylactic reaction [Recovered/Resolved]

NARRATIVE: CASE EVENT DATE: 20220706
